FAERS Safety Report 6973869-4 (Version None)
Quarter: 2010Q3

REPORT INFORMATION
  Report Type: 
  Country: None (occurrence: None)
  Receive Date: 20100909
  Receipt Date: 20100830
  Transmission Date: 20110219
  Serious: Yes (Hospitalization)
  Sender: FDA-Public Use
  Company Number: B0673327A

PATIENT

DRUGS (1)
  1. AUGMENTIN '125' [Suspect]
     Route: 065

REACTIONS (6)
  - CIRCUMORAL OEDEMA [None]
  - DYSPHAGIA [None]
  - GENERALISED ERYTHEMA [None]
  - PRURITUS [None]
  - SWELLING [None]
  - SWELLING FACE [None]
